FAERS Safety Report 21554687 (Version 1)
Quarter: 2022Q4

REPORT INFORMATION
  Report Type: Report from Study
  Country: US (occurrence: US)
  Receive Date: 20221104
  Receipt Date: 20221104
  Transmission Date: 20230113
  Serious: No
  Sender: FDA-Public Use
  Company Number: US-ABBVIE-22K-163-4521235-00

PATIENT
  Sex: Male

DRUGS (5)
  1. HUMIRA [Suspect]
     Active Substance: ADALIMUMAB
     Indication: Psoriatic arthropathy
     Dosage: CITRATE FREE
     Route: 058
     Dates: start: 202202, end: 202204
  2. HUMIRA [Suspect]
     Active Substance: ADALIMUMAB
     Dosage: CITRATE FREE
     Route: 058
     Dates: start: 202204
  3. Pfizer/BioNtech [Concomitant]
     Indication: COVID-19 immunisation
     Dosage: 1ST DOSE ?ONE IN ONCE
     Route: 030
  4. Pfizer/BioNtech [Concomitant]
     Indication: COVID-19 immunisation
     Dosage: 2ND DOSE?ONE IN ONCE
     Route: 030
  5. Pfizer/BioNtech [Concomitant]
     Indication: COVID-19 immunisation
     Dosage: 3RD DOSE?ONE IN ONCE
     Route: 030

REACTIONS (3)
  - Musculoskeletal discomfort [Not Recovered/Not Resolved]
  - Arthralgia [Unknown]
  - Atrial fibrillation [Recovering/Resolving]

NARRATIVE: CASE EVENT DATE: 20220101
